FAERS Safety Report 10097964 (Version 1)
Quarter: 2014Q2

REPORT INFORMATION
  Report Type: Spontaneous
  Country: FR (occurrence: FR)
  Receive Date: 20140423
  Receipt Date: 20140423
  Transmission Date: 20141212
  Serious: Yes (Other)
  Sender: FDA-Public Use
  Company Number: FR-BRISTOL-MYERS SQUIBB COMPANY-20632899

PATIENT
  Age: 56 Year
  Sex: Female

DRUGS (1)
  1. ORENCIA FOR INJ [Suspect]

REACTIONS (1)
  - Neuropathy peripheral [Unknown]
